FAERS Safety Report 4452312-3 (Version None)
Quarter: 2004Q3

REPORT INFORMATION
  Report Type: 
  Country: None (occurrence: None)
  Receive Date: 20040917
  Receipt Date: 20040908
  Transmission Date: 20050211
  Serious: Yes (Other)
  Sender: FDA-Public Use
  Company Number: IE-ROCHE-379920

PATIENT
  Sex: Male

DRUGS (1)
  1. LARIAM [Suspect]
     Route: 048

REACTIONS (4)
  - CONVULSION [None]
  - DYSKINESIA [None]
  - GRAND MAL CONVULSION [None]
  - MUSCLE TWITCHING [None]
